FAERS Safety Report 10938529 (Version 2)
Quarter: 2015Q2

REPORT INFORMATION
  Report Type: Spontaneous
  Country: US (occurrence: US)
  Receive Date: 20150321
  Receipt Date: 20150525
  Transmission Date: 20150821
  Serious: No
  Sender: FDA-Public Use
  Company Number: US-JNJFOC-20111209740

PATIENT
  Age: 61 Year
  Sex: Female

DRUGS (6)
  1. STELARA [Suspect]
     Active Substance: USTEKINUMAB
     Indication: PSORIASIS
     Dosage: PATIENT IS ON STELERA FOR ABOUT ONE YEAR-DOING WELL.
     Route: 058
     Dates: start: 20111221
  2. STELARA [Suspect]
     Active Substance: USTEKINUMAB
     Indication: PSORIASIS
     Dosage: PATIENT IS ON STELERA FOR ABOUT ONE YEAR-DOING WELL.
     Route: 058
     Dates: start: 20101124
  3. STELARA [Suspect]
     Active Substance: USTEKINUMAB
     Indication: PSORIASIS
     Dosage: PATIENT IS ON STELERA FOR ABOUT ONE YEAR-DOING WELL.
     Route: 058
     Dates: start: 20110323
  4. STELARA [Suspect]
     Active Substance: USTEKINUMAB
     Indication: PSORIASIS
     Dosage: PATIENT IS ON STELERA FOR ABOUT ONE YEAR-DOING WELL.
     Route: 058
     Dates: start: 20110921
  5. STELARA [Suspect]
     Active Substance: USTEKINUMAB
     Indication: PSORIASIS
     Dosage: PATIENT IS ON STELERA FOR ABOUT ONE YEAR-DOING WELL.
     Route: 058
     Dates: start: 20101224
  6. STELARA [Suspect]
     Active Substance: USTEKINUMAB
     Indication: PSORIASIS
     Dosage: PATIENT IS ON STELERA FOR ABOUT ONE YEAR-DOING WELL.
     Route: 058
     Dates: start: 20110622

REACTIONS (1)
  - Decreased appetite [Not Recovered/Not Resolved]

NARRATIVE: CASE EVENT DATE: 20101224
